FAERS Safety Report 25903552 (Version 1)
Quarter: 2025Q4

REPORT INFORMATION
  Report Type: Spontaneous
  Country: CA (occurrence: CA)
  Receive Date: 20251010
  Receipt Date: 20251010
  Transmission Date: 20260117
  Serious: Yes (Other)
  Sender: CELLTRION
  Company Number: CA-CELLTRION INC.-2025CA036066

PATIENT

DRUGS (5)
  1. INFLIXIMAB [Suspect]
     Active Substance: INFLIXIMAB
     Indication: Crohn^s disease
     Dosage: 580 MILLIGRAM
     Route: 042
  2. INFLIXIMAB [Suspect]
     Active Substance: INFLIXIMAB
     Dosage: 580 MILLIGRAM
     Route: 042
  3. INFLIXIMAB [Suspect]
     Active Substance: INFLIXIMAB
     Dosage: 570 MILLIGRAM
     Route: 042
  4. INFLIXIMAB [Suspect]
     Active Substance: INFLIXIMAB
     Dosage: 550 MILLIGRAM
     Route: 042
  5. INFLIXIMAB [Suspect]
     Active Substance: INFLIXIMAB
     Dosage: 10 MG/KG
     Route: 042

REACTIONS (6)
  - Aphthous ulcer [Recovered/Resolved]
  - Condition aggravated [Recovered/Resolved]
  - Vaginal haemorrhage [Recovered/Resolved]
  - Maternal exposure during pregnancy [Recovered/Resolved]
  - Overdose [Unknown]
  - Intentional product use issue [Unknown]
